FAERS Safety Report 14820684 (Version 1)
Quarter: 2018Q2

REPORT INFORMATION
  Report Type: Report from Study
  Country: BE (occurrence: BE)
  Receive Date: 20180427
  Receipt Date: 20180427
  Transmission Date: 20180711
  Serious: Yes (Other)
  Sender: FDA-Public Use
  Company Number: BE-SA-2018SA056527

PATIENT
  Sex: Female

DRUGS (1)
  1. LEMTRADA [Suspect]
     Active Substance: ALEMTUZUMAB
     Indication: MULTIPLE SCLEROSIS
     Route: 041
     Dates: end: 20171117

REACTIONS (2)
  - Extraocular muscle paresis [Unknown]
  - Hordeolum [Unknown]

NARRATIVE: CASE EVENT DATE: 20180108
